FAERS Safety Report 4776297-5 (Version None)
Quarter: 2005Q3

REPORT INFORMATION
  Report Type: 
  Country: None (occurrence: None)
  Receive Date: 20050921
  Receipt Date: 20050913
  Transmission Date: 20060218
  Serious: No
  Sender: FDA-Public Use
  Company Number: 02100-JPN-05-0453

PATIENT
  Age: 81 Year
  Sex: Male

DRUGS (5)
  1. CILOSTAZOL [Suspect]
     Indication: CEREBRAL INFARCTION
     Dosage: 100 MG ORAL
     Route: 048
     Dates: start: 20050301
  2. TICLOPIDINE HYDROCHLORIDE [Suspect]
     Dosage: 100 MG ORAL
     Route: 048
     Dates: start: 20020101
  3. LOSARTAN POTASSIUM [Suspect]
     Dosage: 50 MG ORAL
     Route: 048
     Dates: start: 20020101
  4. WARFARIN POTASSIUM [Suspect]
     Dosage: 2 MG ORAL
     Route: 048
     Dates: start: 20050320
  5. METILDIGOXIN [Suspect]
     Dosage: 0.05 MG ORAL
     Route: 048
     Dates: start: 20050320

REACTIONS (3)
  - BLOOD LACTATE DEHYDROGENASE INCREASED [None]
  - PERNICIOUS ANAEMIA [None]
  - PLATELET COUNT DECREASED [None]
